FAERS Safety Report 7974453-6 (Version None)
Quarter: 2011Q4

REPORT INFORMATION
  Report Type: 
  Country: None (occurrence: None)
  Receive Date: 20111213
  Receipt Date: 20111130
  Transmission Date: 20120403
  Serious: Yes (Other)
  Sender: FDA-Public Use
  Company Number: US-MYLANLABS-2011S1025043

PATIENT
  Age: 43 Year
  Sex: Male

DRUGS (5)
  1. FLUVOXAMINE MALEATE [Interacting]
     Dosage: 100MG EVERY MORNING
     Route: 065
  2. LORAZEPAM [Concomitant]
     Indication: ANXIETY DISORDER
     Dosage: UP TO 6MG LORAZEPAM DAILY EQUIVALENTS
     Route: 065
  3. FLUCONAZOLE [Suspect]
     Route: 065
  4. ARSENIC TRIOXIDE [Interacting]
     Indication: ACUTE PROMYELOCYTIC LEUKAEMIA
     Dosage: 00.15 MG/KG INFUSED OVER 2H
     Route: 041
     Dates: start: 20060929
  5. ALPRAZOLAM [Concomitant]
     Indication: ANXIETY DISORDER
     Route: 065

REACTIONS (3)
  - ELECTROCARDIOGRAM QT PROLONGED [None]
  - WITHDRAWAL SYNDROME [None]
  - DRUG INTERACTION [None]
